FAERS Safety Report 21252634 (Version 1)
Quarter: 2022Q3

REPORT INFORMATION
  Report Type: Spontaneous
  Country: US (occurrence: None)
  Receive Date: 20220824
  Receipt Date: 20220824
  Transmission Date: 20221026
  Serious: Yes (Death)
  Sender: FDA-Public Use
  Company Number: None

PATIENT
  Age: 37 Year
  Sex: Female

DRUGS (2)
  1. MIFEPRISTONE [Suspect]
     Active Substance: MIFEPRISTONE
     Indication: Abortion induced
     Dosage: FREQUENCY : ONCE;?
     Route: 048
     Dates: start: 20220525, end: 20220525
  2. MISOPROSTOL [Suspect]
     Active Substance: MISOPROSTOL
     Indication: Abortion induced
     Dosage: FREQUENCY : ONCE;?
     Route: 002
     Dates: start: 20220526, end: 20220526

REACTIONS (6)
  - Abdominal pain [None]
  - Vaginal discharge [None]
  - Clostridium test positive [None]
  - Sepsis [None]
  - Toxic shock syndrome [None]
  - Blood culture positive [None]

NARRATIVE: CASE EVENT DATE: 20220605
